FAERS Safety Report 24557188 (Version 2)
Quarter: 2024Q4

REPORT INFORMATION
  Report Type: Report from Study
  Country: IT (occurrence: IT)
  Receive Date: 20241028
  Receipt Date: 20241031
  Transmission Date: 20250115
  Serious: Yes (Hospitalization)
  Sender: ABBVIE
  Company Number: IT-ABBVIE-5979041

PATIENT
  Age: 54 Year
  Sex: Female

DRUGS (1)
  1. CARBIDOPA\LEVODOPA [Suspect]
     Active Substance: CARBIDOPA\LEVODOPA
     Indication: Parkinson^s disease
     Dosage: DAILY DOSE: 1.574,4 MG; CRL: 0,22ML/H CRB: 0,3ML/H CRH: 0,34ML/H ED: 0ML LD: 1ML
     Route: 058
     Dates: start: 20240724

REACTIONS (3)
  - Uterine leiomyoma [Unknown]
  - Vomiting [Unknown]
  - Nausea [Unknown]
